FAERS Safety Report 24247195 (Version 1)
Quarter: 2024Q3

REPORT INFORMATION
  Report Type: Other
  Country: US (occurrence: US)
  Receive Date: 20240826
  Receipt Date: 20240826
  Transmission Date: 20241016
  Serious: Yes (Hospitalization)
  Sender: BIOCON
  Company Number: US-MLMSERVICE-20240806-PI153842-00147-1

PATIENT

DRUGS (1)
  1. PEGFILGRASTIM [Suspect]
     Active Substance: PEGFILGRASTIM
     Indication: Agranulocytosis
     Dosage: 1 DOSAGE FORMS
     Route: 065

REACTIONS (4)
  - Pain in jaw [Recovered/Resolved]
  - Staphylococcal bacteraemia [Recovered/Resolved]
  - Unmasking of previously unidentified disease [Recovered/Resolved]
  - Swelling face [Recovered/Resolved]
